FAERS Safety Report 5411688-0 (Version None)
Quarter: 2007Q3

REPORT INFORMATION
  Report Type: 
  Country: None (occurrence: None)
  Receive Date: 20070810
  Receipt Date: 20070803
  Transmission Date: 20080115
  Serious: Yes (Death)
  Sender: FDA-Public Use
  Company Number: IT-GENENTECH-245691

PATIENT
  Sex: Male

DRUGS (14)
  1. RITUXAN [Suspect]
     Indication: JUVENILE ARTHRITIS
     Dosage: 1000 MG, UNK
     Route: 042
     Dates: start: 20070515, end: 20070515
  2. LANSOPRAZOLE [Concomitant]
     Indication: DRUG USE FOR UNKNOWN INDICATION
     Dosage: 30 MG, UNK
  3. IMMUNE GLOBULIN INTRAVENOUS (HUMAN) [Concomitant]
     Indication: DRUG USE FOR UNKNOWN INDICATION
     Dosage: 2 G/KG, UNK
     Route: 042
  4. KINERET [Concomitant]
     Indication: JUVENILE ARTHRITIS
     Dosage: 100 MG, UNK
     Dates: start: 20001001, end: 20070531
  5. METHOTREXATE [Concomitant]
     Indication: DRUG USE FOR UNKNOWN INDICATION
     Dosage: 15 MG, UNK
     Route: 042
  6. FOLINA [Concomitant]
     Indication: DRUG USE FOR UNKNOWN INDICATION
     Dosage: 10 MG, UNK
     Route: 030
  7. DELTACORTENE [Concomitant]
     Indication: DRUG USE FOR UNKNOWN INDICATION
     Dosage: 75 MG, UNK
     Route: 048
  8. ISONIAZID [Concomitant]
     Indication: DRUG USE FOR UNKNOWN INDICATION
     Dosage: 300 MG, UNK
     Route: 048
     Dates: start: 20060901
  9. BENADON [Concomitant]
     Indication: DRUG USE FOR UNKNOWN INDICATION
     Dosage: 300 MG, UNK
     Route: 048
     Dates: start: 20060901
  10. LASIX [Concomitant]
     Indication: DRUG USE FOR UNKNOWN INDICATION
     Dosage: 20 MG, UNK
  11. SPORANOX [Concomitant]
     Indication: DRUG USE FOR UNKNOWN INDICATION
     Dosage: 100 MG, UNK
  12. ACTONEL [Concomitant]
     Indication: DRUG USE FOR UNKNOWN INDICATION
     Dosage: 35 MG, UNK
     Route: 048
  13. CALCIUM CARBONATE [Concomitant]
     Indication: DRUG USE FOR UNKNOWN INDICATION
     Dosage: 600 MG, UNK
     Route: 048
  14. COLECALCIFEROL [Concomitant]
     Indication: DRUG USE FOR UNKNOWN INDICATION
     Dosage: 400 IU, UNK
     Route: 048

REACTIONS (2)
  - PNEUMONIA CYTOMEGALOVIRAL [None]
  - RENAL IMPAIRMENT [None]
